FAERS Safety Report 10228423 (Version 2)
Quarter: 2014Q2

REPORT INFORMATION
  Report Type: Spontaneous
  Country: US (occurrence: US)
  Receive Date: 20140610
  Receipt Date: 20140624
  Transmission Date: 20141212
  Serious: No
  Sender: FDA-Public Use
  Company Number: US-TEVA-486853USA

PATIENT
  Sex: Female

DRUGS (1)
  1. COPAXONE [Suspect]
     Indication: MULTIPLE SCLEROSIS
     Dates: start: 20100401, end: 20111001

REACTIONS (4)
  - Flushing [Unknown]
  - Dyspnoea [Unknown]
  - Rash erythematous [Unknown]
  - Rash pruritic [Unknown]
